FAERS Safety Report 11513621 (Version 1)
Quarter: 2015Q3

REPORT INFORMATION
  Report Type: Spontaneous
  Country: US (occurrence: US)
  Receive Date: 20150903
  Receipt Date: 20150903
  Transmission Date: 20151125
  Serious: No
  Sender: FDA-Public Use
  Company Number: US-ELI_LILLY_AND_COMPANY-US201211003823

PATIENT
  Age: 32 Year
  Sex: Female

DRUGS (7)
  1. SEROQUEL [Concomitant]
     Active Substance: QUETIAPINE FUMARATE
  2. CONTRACEPTIVES [Concomitant]
     Active Substance: UNSPECIFIED INGREDIENT
  3. CYMBALTA [Suspect]
     Active Substance: DULOXETINE HYDROCHLORIDE
     Indication: DEPRESSION
     Dosage: 60 MG, BID
  4. TOPAMAX [Concomitant]
     Active Substance: TOPIRAMATE
  5. MARIJUANA [Concomitant]
     Active Substance: CANNABIS SATIVA SUBSP. INDICA TOP
  6. SYNTHROID [Concomitant]
     Active Substance: LEVOTHYROXINE SODIUM
  7. VICODIN [Concomitant]
     Active Substance: ACETAMINOPHEN\HYDROCODONE BITARTRATE
     Dosage: 5 MG, UNK

REACTIONS (9)
  - Depression [Not Recovered/Not Resolved]
  - Pain [Recovered/Resolved]
  - Hypoaesthesia [Not Recovered/Not Resolved]
  - Tremor [Recovered/Resolved]
  - Menorrhagia [Unknown]
  - Weight decreased [Unknown]
  - Loss of libido [Not Recovered/Not Resolved]
  - Drug dose omission [Recovered/Resolved]
  - Dysmenorrhoea [Not Recovered/Not Resolved]
